FAERS Safety Report 4908082-5 (Version None)
Quarter: 2006Q1

REPORT INFORMATION
  Report Type: 
  Country: None (occurrence: None)
  Receive Date: 20060210
  Receipt Date: 20060201
  Transmission Date: 20060701
  Serious: Yes (Other)
  Sender: FDA-Public Use
  Company Number: PHFR2006GB00728

PATIENT

DRUGS (1)
  1. VOLTAREN [Suspect]
     Route: 065

REACTIONS (1)
  - FRACTURE DELAYED UNION [None]
